FAERS Safety Report 4357097-7 (Version None)
Quarter: 2004Q2

REPORT INFORMATION
  Report Type: 
  Country: None (occurrence: None)
  Receive Date: 20040507
  Receipt Date: 20040430
  Transmission Date: 20050107
  Serious: Yes (Other)
  Sender: FDA-Public Use
  Company Number: NO-SHR-03-018939

PATIENT
  Age: 17 Year
  Sex: Female

DRUGS (1)
  1. YASMIN [Suspect]
     Indication: ORAL CONTRACEPTION
     Dosage: 1 TABLET (S),  21D/28D, ORAL
     Route: 048
     Dates: start: 20021201, end: 20031201

REACTIONS (10)
  - BLOOD ALKALINE PHOSPHATASE INCREASED [None]
  - BLOOD PROLACTIN INCREASED [None]
  - BREAST PAIN [None]
  - DIZZINESS [None]
  - HAEMATEMESIS [None]
  - INCREASED UPPER AIRWAY SECRETION [None]
  - IRON BINDING CAPACITY TOTAL INCREASED [None]
  - MALAISE [None]
  - PITUITARY-DEPENDENT CUSHING'S SYNDROME [None]
  - SKIN STRIAE [None]
